FAERS Safety Report 13611719 (Version 1)
Quarter: 2017Q2

REPORT INFORMATION
  Report Type: Spontaneous
  Country: DE (occurrence: DE)
  Receive Date: 20170605
  Receipt Date: 20170605
  Transmission Date: 20170830
  Serious: Yes (Life-Threatening)
  Sender: FDA-Public Use
  Company Number: DE-ROCHE-1943910

PATIENT
  Sex: Male

DRUGS (3)
  1. MABTHERA [Suspect]
     Active Substance: RITUXIMAB
     Route: 042
     Dates: start: 20170216, end: 20170216
  2. MABTHERA [Suspect]
     Active Substance: RITUXIMAB
     Indication: LYMPHOMA
     Route: 042
     Dates: start: 20170119, end: 20170119
  3. MABTHERA [Suspect]
     Active Substance: RITUXIMAB
     Route: 042
     Dates: start: 20170202, end: 20170202

REACTIONS (1)
  - Pulmonary fibrosis [Not Recovered/Not Resolved]

NARRATIVE: CASE EVENT DATE: 20170306
